FAERS Safety Report 6865305-3 (Version None)
Quarter: 2010Q3

REPORT INFORMATION
  Report Type: 
  Country: None (occurrence: None)
  Receive Date: 20100720
  Receipt Date: 20100709
  Transmission Date: 20110219
  Serious: Yes (Other)
  Sender: FDA-Public Use
  Company Number: OSCN-NO-0902S-0121

PATIENT
  Age: 60 Year
  Sex: Male
  Weight: 75 kg

DRUGS (8)
  1. OMNISCAN [Suspect]
     Indication: RENAL TRANSPLANT
     Dosage: 15 ML, I.E. 0.1 MMOL/KG, SINGLE DOSE, I.V.
     Route: 042
     Dates: start: 20000106, end: 20000106
  2. IMMUNOSUPPRESSIVE THERAPIES [Concomitant]
  3. IRON SUPPLEMENTATION [Concomitant]
  4. METOPROLOL [Concomitant]
  5. EPOETIN BETA [Concomitant]
  6. FUROSEMIDE [Concomitant]
  7. AMLODIPINE [Concomitant]
  8. ATORVASTATIN [Concomitant]

REACTIONS (2)
  - METABOLIC ACIDOSIS [None]
  - NEPHROGENIC SYSTEMIC FIBROSIS [None]
